FAERS Safety Report 11761174 (Version 4)
Quarter: 2018Q4

REPORT INFORMATION
  Report Type: Spontaneous
  Country: US (occurrence: US)
  Receive Date: 20151120
  Receipt Date: 20181211
  Transmission Date: 20190204
  Serious: Yes (Hospitalization, Other)
  Sender: FDA-Public Use
  Company Number: US-DSJP-DSU-2015-118709

PATIENT

DRUGS (9)
  1. BENICAR [Suspect]
     Active Substance: OLMESARTAN MEDOXOMIL
     Indication: HYPERTENSION
     Dosage: 20 MG
     Dates: start: 20110124
  2. BENICAR [Suspect]
     Active Substance: OLMESARTAN MEDOXOMIL
     Dosage: 40 MG, QD
     Dates: start: 20110124, end: 20140227
  3. HYDROCHLOROTHIAZIDE. [Concomitant]
     Active Substance: HYDROCHLOROTHIAZIDE
     Indication: PRODUCT USED FOR UNKNOWN INDICATION
     Dosage: 12.5 MG, UNK
     Dates: start: 2007
  4. BENICAR HCT [Suspect]
     Active Substance: HYDROCHLOROTHIAZIDE\OLMESARTAN MEDOXOMIL
     Indication: HYPERTENSION
     Dosage: UNK
     Dates: end: 20140227
  5. LISINOPRIL. [Concomitant]
     Active Substance: LISINOPRIL
     Indication: PRODUCT USED FOR UNKNOWN INDICATION
     Dosage: 40 MG, QD
     Dates: start: 2004
  6. HYDROCHLOROTHIAZIDE. [Concomitant]
     Active Substance: HYDROCHLOROTHIAZIDE
     Dosage: 25 MG, UNK
  7. FUROSEMIDE. [Concomitant]
     Active Substance: FUROSEMIDE
     Indication: PRODUCT USED FOR UNKNOWN INDICATION
     Dosage: 20 MG, PRN
     Dates: start: 2006
  8. FUROSEMIDE. [Concomitant]
     Active Substance: FUROSEMIDE
     Dosage: 20 MG, PRN
     Dates: start: 2012
  9. CLONIDINE. [Concomitant]
     Active Substance: CLONIDINE
     Indication: PRODUCT USED FOR UNKNOWN INDICATION
     Dosage: 0.1-02 MG/ DAILY
     Dates: start: 2004

REACTIONS (21)
  - Cholecystectomy [Recovered/Resolved]
  - Intestinal obstruction [Unknown]
  - Acute kidney injury [Unknown]
  - Escherichia bacteraemia [Unknown]
  - Sprue-like enteropathy [Recovering/Resolving]
  - Constipation [Unknown]
  - C-reactive protein increased [Unknown]
  - Irritable bowel syndrome [Unknown]
  - Lactose intolerance [Unknown]
  - Dizziness [Unknown]
  - Inflammatory bowel disease [Unknown]
  - Gastrointestinal haemorrhage [Unknown]
  - Gluten sensitivity [Unknown]
  - Urosepsis [Unknown]
  - Diverticulum [Unknown]
  - Hiatus hernia [Unknown]
  - Dysphagia [Unknown]
  - Diverticulitis [Unknown]
  - Hypotension [Unknown]
  - Anxiety [Unknown]
  - Haematochezia [Unknown]

NARRATIVE: CASE EVENT DATE: 20120101
